FAERS Safety Report 15808071 (Version 2)
Quarter: 2019Q1

REPORT INFORMATION
  Report Type: Report from Study
  Country: CA (occurrence: CA)
  Receive Date: 20190110
  Receipt Date: 20190123
  Transmission Date: 20190417
  Serious: Yes (Hospitalization, Other)
  Sender: FDA-Public Use
  Company Number: CA-JNJFOC-20190102624

PATIENT
  Age: 46 Year
  Sex: Female
  Weight: 100 kg

DRUGS (2)
  1. REMICADE [Suspect]
     Active Substance: INFLIXIMAB
     Indication: COLITIS ULCERATIVE
     Dosage: STRENGTH = 100 MG
     Route: 042
     Dates: start: 20160315
  2. REMICADE [Suspect]
     Active Substance: INFLIXIMAB
     Indication: COLITIS ULCERATIVE
     Route: 042
     Dates: start: 20160229

REACTIONS (3)
  - Wound [Recovering/Resolving]
  - Pneumonia [Recovered/Resolved]
  - Neoplasm [Unknown]

NARRATIVE: CASE EVENT DATE: 20181112
